FAERS Safety Report 17865956 (Version 5)
Quarter: 2021Q1

REPORT INFORMATION
  Report Type: Spontaneous
  Country: US (occurrence: US)
  Receive Date: 20200605
  Receipt Date: 20210125
  Transmission Date: 20210419
  Serious: No
  Sender: FDA-Public Use
  Company Number: US-PFIZER INC-2020220567

PATIENT
  Age: 77 Year
  Sex: Male

DRUGS (1)
  1. XELJANZ XR [Suspect]
     Active Substance: TOFACITINIB CITRATE
     Indication: RHEUMATOID ARTHRITIS
     Dosage: 11 MG, 1X/DAY
     Route: 048
     Dates: start: 202004, end: 20201206

REACTIONS (9)
  - Feeling abnormal [Unknown]
  - Arthralgia [Unknown]
  - Myalgia [Recovering/Resolving]
  - Rash macular [Unknown]
  - Product dose omission in error [Unknown]
  - Erythema [Unknown]
  - Pain [Recovered/Resolved]
  - Pruritus [Recovering/Resolving]
  - Intentional dose omission [Unknown]

NARRATIVE: CASE EVENT DATE: 2020
